FAERS Safety Report 15281842 (Version 1)
Quarter: 2018Q3

REPORT INFORMATION
  Report Type: Spontaneous
  Country: PL (occurrence: PL)
  Receive Date: 20180815
  Receipt Date: 20180815
  Transmission Date: 20181010
  Serious: Yes (Hospitalization)
  Sender: FDA-Public Use
  Company Number: PL-GILEAD-2018-0355534

PATIENT
  Age: 67 Year
  Sex: Male

DRUGS (2)
  1. EPCLUSA [Suspect]
     Active Substance: SOFOSBUVIR\VELPATASVIR
     Indication: HEPATITIS C
     Dosage: UNK
     Route: 065
     Dates: start: 20180713, end: 20180717
  2. RIBAVIRIN. [Suspect]
     Active Substance: RIBAVIRIN
     Indication: HEPATITIS C
     Route: 065

REACTIONS (5)
  - Liver disorder [Unknown]
  - Blood bilirubin abnormal [Unknown]
  - Ammonia abnormal [Unknown]
  - Alanine aminotransferase abnormal [Unknown]
  - General physical health deterioration [Unknown]
